FAERS Safety Report 12877170 (Version 2)
Quarter: 2016Q4

REPORT INFORMATION
  Report Type: Spontaneous
  Country: US (occurrence: US)
  Receive Date: 20161024
  Receipt Date: 20161109
  Transmission Date: 20170207
  Serious: No
  Sender: FDA-Public Use
  Company Number: PHEH2016US026916

PATIENT
  Age: 72 Year
  Sex: Male

DRUGS (2)
  1. WARFARIN [Concomitant]
     Active Substance: WARFARIN
     Indication: PRODUCT USED FOR UNKNOWN INDICATION
     Route: 065
  2. ENTRESTO [Suspect]
     Active Substance: SACUBITRIL\VALSARTAN
     Indication: CHRONIC LEFT VENTRICULAR FAILURE
     Dosage: 100 MG UNK
     Route: 048
     Dates: start: 20161004, end: 20161017

REACTIONS (1)
  - International normalised ratio increased [Recovered/Resolved]

NARRATIVE: CASE EVENT DATE: 20161010
